FAERS Safety Report 14230339 (Version 2)
Quarter: 2018Q1

REPORT INFORMATION
  Report Type: Report from Study
  Country: None (occurrence: AU)
  Receive Date: 20171128
  Receipt Date: 20180119
  Transmission Date: 20180508
  Serious: Yes (Hospitalization, Other)
  Sender: FDA-Public Use
  Company Number: AU-ABBVIE-17S-008-2173217-00

PATIENT
  Age: 70 Year
  Sex: Male
  Weight: 77 kg

DRUGS (1)
  1. LUCRIN DEPOT [Suspect]
     Active Substance: LEUPROLIDE ACETATE
     Indication: PRODUCT USED FOR UNKNOWN INDICATION
     Route: 030
     Dates: start: 201705

REACTIONS (1)
  - Gastrointestinal carcinoma [Not Recovered/Not Resolved]

NARRATIVE: CASE EVENT DATE: 20171116
